FAERS Safety Report 16236322 (Version 2)
Quarter: 2019Q2

REPORT INFORMATION
  Report Type: Spontaneous
  Country: US (occurrence: US)
  Receive Date: 20190425
  Receipt Date: 20190429
  Transmission Date: 20190711
  Serious: Yes (Other)
  Sender: FDA-Public Use
  Company Number: US-RECKITT BENCKISER HEALTHCARE INT LIMITED-RB-84365-2019

PATIENT
  Age: 11 Year
  Sex: Female

DRUGS (1)
  1. CLEARASIL RAPID RESCUE DEEP TREATMENT WASH [Suspect]
     Active Substance: SALICYLIC ACID
     Indication: ACNE
     Dosage: UNK, SINGLE
     Route: 061
     Dates: start: 20190408, end: 20190408

REACTIONS (9)
  - Lip swelling [Recovering/Resolving]
  - Swelling [Recovering/Resolving]
  - Swelling of eyelid [Recovering/Resolving]
  - Swelling face [Recovering/Resolving]
  - Rash [Recovering/Resolving]
  - Wheezing [Recovered/Resolved]
  - Skin burning sensation [Recovering/Resolving]
  - Dyspnoea [Recovering/Resolving]
  - Adverse drug reaction [Recovering/Resolving]

NARRATIVE: CASE EVENT DATE: 20190408
